FAERS Safety Report 6382334-7 (Version None)
Quarter: 2009Q3

REPORT INFORMATION
  Report Type: 
  Country: None (occurrence: None)
  Receive Date: 20090930
  Receipt Date: 20090916
  Transmission Date: 20100115
  Serious: Yes (Other)
  Sender: FDA-Public Use
  Company Number: BR-PFIZER INC-2009256480

PATIENT
  Age: 47 Year

DRUGS (3)
  1. FRONTAL XR [Suspect]
     Indication: ANXIETY
     Dosage: UNK MG, UNK
     Route: 048
     Dates: start: 20060101
  2. CYMBALTA [Concomitant]
     Dosage: UNK
     Dates: start: 20060101, end: 20060101
  3. AMLODIPINE [Concomitant]

REACTIONS (15)
  - DIZZINESS [None]
  - DRUG DEPENDENCE [None]
  - EAR PAIN [None]
  - EYE PAIN [None]
  - FACIAL PAIN [None]
  - FEELING ABNORMAL [None]
  - HYPERTENSION [None]
  - LISTLESS [None]
  - MALAISE [None]
  - MENOPAUSE [None]
  - PAIN [None]
  - SLEEP DISORDER [None]
  - SOMNOLENCE [None]
  - TREMOR [None]
  - WEIGHT INCREASED [None]
